FAERS Safety Report 7464074-6 (Version None)
Quarter: 2011Q2

REPORT INFORMATION
  Report Type: 
  Country: None (occurrence: None)
  Receive Date: 20110506
  Receipt Date: 20110421
  Transmission Date: 20111010
  Serious: No
  Sender: FDA-Public Use
  Company Number: US-B.I. PHARMACEUTICALS,INC./RIDGEFIELD-2011-BP-05156BP

PATIENT
  Age: 66 Year
  Sex: Female

DRUGS (6)
  1. LISINOPRIL [Concomitant]
     Indication: HYPERTENSION
  2. PRADAXA [Suspect]
     Indication: ATRIAL FIBRILLATION
     Dosage: 300 MG
     Route: 048
     Dates: start: 20110101
  3. DIGOXIN [Concomitant]
     Indication: ATRIAL FIBRILLATION
  4. ATENOLOL [Concomitant]
     Indication: HYPERTENSION
  5. ZOLOFT [Concomitant]
  6. NEURONTIN [Concomitant]

REACTIONS (3)
  - FLATULENCE [None]
  - DYSPEPSIA [None]
  - DIARRHOEA [None]
